FAERS Safety Report 7733115-0 (Version None)
Quarter: 2011Q3

REPORT INFORMATION
  Report Type: 
  Country: None (occurrence: None)
  Receive Date: 20110907
  Receipt Date: 20110902
  Transmission Date: 20111222
  Serious: Yes (Death, Other)
  Sender: FDA-Public Use
  Company Number: PHHY2011AU59375

PATIENT
  Sex: Female

DRUGS (5)
  1. CLOZAPINE [Suspect]
     Dosage: 500 MG, UNK
     Route: 048
     Dates: end: 20040325
  2. DIAMICRON [Concomitant]
     Dosage: 160 MG, BID
  3. CITALOPRAM [Concomitant]
     Dosage: 20 MG, UNK
  4. DIAZEPAM [Concomitant]
     Dosage: 2 MG, DAILY
  5. CLOZAPINE [Suspect]
     Indication: DEMENTIA
     Dosage: 12.5 MG, UNK
     Route: 048
     Dates: start: 20021122

REACTIONS (4)
  - CARDIAC ARREST [None]
  - COMA [None]
  - ATRIOVENTRICULAR BLOCK [None]
  - MYOCARDIAL INFARCTION [None]
